FAERS Safety Report 24813575 (Version 1)
Quarter: 2025Q1

REPORT INFORMATION
  Report Type: Other
  Country: IE (occurrence: IE)
  Receive Date: 20250107
  Receipt Date: 20250107
  Transmission Date: 20250409
  Serious: Yes (Other)
  Sender: Steriscience PTE
  Company Number: IE-BAXTER-2024BAX029956

PATIENT
  Age: 79 Year
  Sex: Male

DRUGS (2)
  1. MEROPENEM [Suspect]
     Active Substance: MEROPENEM
     Indication: Aortic aneurysm repair
     Route: 042
     Dates: start: 20220523
  2. MEROPENEM [Suspect]
     Active Substance: MEROPENEM
     Indication: Graft infection

REACTIONS (3)
  - Malaise [None]
  - Body temperature increased [None]
  - Hypotension [None]

NARRATIVE: CASE EVENT DATE: 20241223
